FAERS Safety Report 20230947 (Version 1)
Quarter: 2021Q4

REPORT INFORMATION
  Report Type: Spontaneous
  Country: ES (occurrence: ES)
  Receive Date: 20211227
  Receipt Date: 20211227
  Transmission Date: 20220303
  Serious: Yes (Other)
  Sender: FDA-Public Use
  Company Number: ES-AstraZeneca-2021A882906

PATIENT
  Sex: Female

DRUGS (1)
  1. SYNAGIS [Suspect]
     Active Substance: PALIVIZUMAB
     Indication: Antiviral prophylaxis
     Dosage: 6.6 DOSES OF PALIVIZUMAB WERE ADMINISTERED?OFF LABEL USE
     Route: 030

REACTIONS (2)
  - Superinfection bacterial [Unknown]
  - Off label use [Unknown]
